FAERS Safety Report 4862417-0 (Version None)
Quarter: 2005Q4

REPORT INFORMATION
  Report Type: 
  Country: None (occurrence: None)
  Receive Date: 20051129
  Receipt Date: 20050906
  Transmission Date: 20060501
  Serious: No
  Sender: FDA-Public Use
  Company Number: WAES 0509USA00547

PATIENT
  Age: 71 Year
  Sex: Male

DRUGS (11)
  1. ZETIA [Suspect]
     Indication: BLOOD CHOLESTEROL INCREASED
     Dosage: 10 MG WKY
     Route: 065
     Dates: start: 20050701, end: 20050906
  2. PROSCAR [Concomitant]
  3. SAW PALMETTO STANDARDIZED EXTRAC [Concomitant]
  4. SYNTHROID [Concomitant]
  5. ZOCOR [Concomitant]
  6. ASPIRIN [Concomitant]
  7. CALCIUM (UNSPECIFIED) [Concomitant]
  8. LISINOPRIL [Concomitant]
  9. OMEGA-3 MARINE TRIGLYCERIDES [Concomitant]
  10. OMEPRAZOLE [Concomitant]
  11. VITAMIN D (UNSPECIFIED) [Concomitant]

REACTIONS (5)
  - ARTHRALGIA [None]
  - DIZZINESS [None]
  - DYSKINESIA [None]
  - INAPPROPRIATE SCHEDULE OF DRUG ADMINISTRATION [None]
  - POLLAKIURIA [None]
